FAERS Safety Report 5275526-1 (Version None)
Quarter: 2007Q1

REPORT INFORMATION
  Report Type: 
  Country: None (occurrence: None)
  Receive Date: 20070326
  Receipt Date: 20070312
  Transmission Date: 20070707
  Serious: Yes (Hospitalization, Other)
  Sender: FDA-Public Use
  Company Number: PHBS2007US04524

PATIENT
  Age: 16 Year
  Sex: Female

DRUGS (3)
  1. OXCARBAZEPINE [Suspect]
     Route: 065
  2. GABAPENTIN [Concomitant]
     Route: 065
  3. METHADONE HCL [Concomitant]

REACTIONS (6)
  - DIZZINESS [None]
  - HEADACHE [None]
  - MYOCLONUS [None]
  - NAUSEA [None]
  - VISION BLURRED [None]
  - VOMITING [None]
